FAERS Safety Report 12388990 (Version 2)
Quarter: 2020Q4

REPORT INFORMATION
  Report Type: Spontaneous
  Country: CA (occurrence: CA)
  Receive Date: 20160520
  Receipt Date: 20201126
  Transmission Date: 20210113
  Serious: Yes (Hospitalization, Other)
  Sender: FDA-Public Use
  Company Number: CA-009507513-1409CAN014235

PATIENT
  Age: 59 Year
  Sex: Male

DRUGS (14)
  1. AVASTIN [Suspect]
     Active Substance: BEVACIZUMAB
     Indication: GLIOBLASTOMA
     Dosage: 1450 MG, Q3W
     Route: 042
     Dates: start: 20130313
  2. AVODART [Concomitant]
     Active Substance: DUTASTERIDE
  3. AVASTIN [Suspect]
     Active Substance: BEVACIZUMAB
     Dosage: 1450 MG, 1 EVERY 3 WEEKS
     Route: 042
     Dates: start: 20140819, end: 20151013
  4. AVASTIN [Suspect]
     Active Substance: BEVACIZUMAB
     Dosage: 1450 MG, 1 EVERY 3 WEEKS
     Route: 042
     Dates: start: 20140819, end: 20151013
  5. DECADRON [Concomitant]
     Active Substance: DEXAMETHASONE
  6. AVASTIN [Suspect]
     Active Substance: BEVACIZUMAB
     Dosage: 1450 MG, 1 EVERY 3 WEEKS
     Route: 042
     Dates: start: 20140819, end: 20151013
  7. GRANISETRON HYDROCHLORIDE. [Concomitant]
     Active Substance: GRANISETRON HYDROCHLORIDE
     Dosage: DURING TEMODAL CYCLE
     Route: 065
  8. TEMODAL [Suspect]
     Active Substance: TEMOZOLOMIDE
     Indication: PRODUCT USED FOR UNKNOWN INDICATION
     Dosage: STARTED ON 28 ARI
     Route: 065
     Dates: start: 20130313
  9. PANTOPRAZOLE SODIUM. [Concomitant]
     Active Substance: PANTOPRAZOLE SODIUM
  10. AVASTIN [Suspect]
     Active Substance: BEVACIZUMAB
     Dosage: 1450 MG, 1 EVERY 3 WEEKS
     Route: 042
     Dates: start: 20140819, end: 20151013
  11. AMLODIPINE BESYLATE. [Concomitant]
     Active Substance: AMLODIPINE BESYLATE
  12. DEXAMETHASONE. [Concomitant]
     Active Substance: DEXAMETHASONE
  13. AVASTIN [Suspect]
     Active Substance: BEVACIZUMAB
     Dosage: 1440 MG
     Route: 042
  14. FLOMAX [Concomitant]
     Active Substance: TAMSULOSIN HYDROCHLORIDE

REACTIONS (22)
  - Post procedural swelling [Not Recovered/Not Resolved]
  - Swelling [Recovering/Resolving]
  - Blood pressure increased [Not Recovered/Not Resolved]
  - Blood urine present [Not Recovered/Not Resolved]
  - Intestinal perforation [Recovered/Resolved]
  - Urinary retention [Not Recovered/Not Resolved]
  - Blood pressure increased [Not Recovered/Not Resolved]
  - Abdominal pain [Not Recovered/Not Resolved]
  - Medication error [Not Recovered/Not Resolved]
  - Deep vein thrombosis [Not Recovered/Not Resolved]
  - Hypertension [Not Recovered/Not Resolved]
  - Nasopharyngitis [Recovered/Resolved]
  - Prostatomegaly [Not Recovered/Not Resolved]
  - Rash [Not Recovered/Not Resolved]
  - Neoplasm progression [Not Recovered/Not Resolved]
  - Platelet count decreased [Not Recovered/Not Resolved]
  - Skin abrasion [Recovering/Resolving]
  - Fluid retention [Not Recovered/Not Resolved]
  - Infusion related reaction [Not Recovered/Not Resolved]
  - Lung abscess [Not Recovered/Not Resolved]
  - Muscular weakness [Not Recovered/Not Resolved]
  - Pneumonia [Not Recovered/Not Resolved]

NARRATIVE: CASE EVENT DATE: 201409
